FAERS Safety Report 10458045 (Version 1)
Quarter: 2014Q3

REPORT INFORMATION
  Report Type: Spontaneous
  Country: AU (occurrence: AU)
  Receive Date: 20140916
  Receipt Date: 20140916
  Transmission Date: 20150326
  Serious: Yes (Death, Hospitalization)
  Sender: FDA-Public Use
  Company Number: PHHY2014AU116648

PATIENT
  Age: 32 Year
  Sex: Female

DRUGS (6)
  1. VITAMIN B12 [Concomitant]
     Active Substance: CYANOCOBALAMIN
  2. IRON COMPOUND [Concomitant]
  3. ESOMEPRAZOLE [Concomitant]
     Active Substance: ESOMEPRAZOLE
     Dosage: 40 MG, BID
  4. IBUPROFEN. [Suspect]
     Active Substance: IBUPROFEN
     Indication: TOOTHACHE
     Dosage: 8 DF, DAILY
  5. DOTHIEPIN HYDROCHLORIDE [Concomitant]
     Active Substance: DOTHIEPIN HYDROCHLORIDE
     Dosage: 200 MG, DAILY
  6. ANTIBIOTICS [Concomitant]
     Active Substance: UNSPECIFIED INGREDIENT

REACTIONS (14)
  - Gastric ulcer [Fatal]
  - Duodenal ulcer [Fatal]
  - Oesophageal stenosis [Fatal]
  - Gastritis [Fatal]
  - Renal tubular acidosis [Unknown]
  - Generalised oedema [Unknown]
  - Gastric ulcer haemorrhage [Unknown]
  - Intestinal diaphragm disease [Unknown]
  - Fibrosis [Fatal]
  - Nephropathy toxic [Unknown]
  - Protein-losing gastroenteropathy [Fatal]
  - Abdominal pain upper [Fatal]
  - Small intestinal stenosis [Fatal]
  - Hypoalbuminaemia [Fatal]

NARRATIVE: CASE EVENT DATE: 200906
